FAERS Safety Report 11658385 (Version 1)
Quarter: 2015Q4

REPORT INFORMATION
  Report Type: Spontaneous
  Country: US (occurrence: US)
  Receive Date: 20151026
  Receipt Date: 20151026
  Transmission Date: 20160304
  Serious: No
  Sender: FDA-Public Use
  Company Number: US-NOVEN PHARMACEUTICALS, INC.-US2015000537

PATIENT
  Age: 48 Year
  Sex: Female

DRUGS (6)
  1. CELEXA [Concomitant]
     Active Substance: CITALOPRAM HYDROBROMIDE
     Indication: DEPRESSION
  2. SINGULAIR [Concomitant]
     Active Substance: MONTELUKAST SODIUM
     Indication: HYPERSENSITIVITY
  3. PROCTOSERT HC [Concomitant]
     Indication: INTERVERTEBRAL DISC PROTRUSION
  4. BRISDELLE [Suspect]
     Active Substance: PAROXETINE MESYLATE
     Indication: NIGHT SWEATS
     Dosage: 7.5 MG, UNKNOWN
     Route: 048
     Dates: start: 201501
  5. BRISDELLE [Suspect]
     Active Substance: PAROXETINE MESYLATE
     Indication: HOT FLUSH
  6. LEVOTHYROXINE SODIUM. [Concomitant]
     Active Substance: LEVOTHYROXINE SODIUM
     Indication: THYROID DISORDER

REACTIONS (2)
  - Hot flush [Unknown]
  - Treatment noncompliance [Unknown]
